FAERS Safety Report 6760813-8 (Version None)
Quarter: 2010Q2

REPORT INFORMATION
  Report Type: 
  Country: None (occurrence: None)
  Receive Date: 20100607
  Receipt Date: 20100607
  Transmission Date: 20101027
  Serious: No
  Sender: FDA-Public Use
  Company Number: None

PATIENT
  Age: 68 Year
  Sex: Female
  Weight: 65.7716 kg

DRUGS (2)
  1. TRICOR [Suspect]
     Indication: BLOOD CHOLESTEROL INCREASED
     Dosage: 145 MG DAILY
     Dates: start: 20100101, end: 20100215
  2. TRICOR [Suspect]
     Indication: BLOOD TRIGLYCERIDES INCREASED
     Dosage: 145 MG DAILY
     Dates: start: 20100101, end: 20100215

REACTIONS (2)
  - GAIT DISTURBANCE [None]
  - MYALGIA [None]
